FAERS Safety Report 24971793 (Version 4)
Quarter: 2025Q1

REPORT INFORMATION
  Report Type: Spontaneous
  Country: CH (occurrence: CH)
  Receive Date: 20250214
  Receipt Date: 20250304
  Transmission Date: 20250409
  Serious: Yes (Hospitalization)
  Sender: PFIZER
  Company Number: None

PATIENT
  Age: 76 Year
  Sex: Female

DRUGS (22)
  1. ALDACTONE [Interacting]
     Active Substance: SPIRONOLACTONE
     Dosage: 25 MG, 1X/DAY
     Route: 048
     Dates: end: 20241130
  2. ENTRESTO [Interacting]
     Active Substance: SACUBITRIL\VALSARTAN
     Dosage: FREQ:12 H;
     Route: 048
     Dates: end: 20241130
  3. SULFAMETHOXAZOLE\TRIMETHOPRIM [Interacting]
     Active Substance: SULFAMETHOXAZOLE\TRIMETHOPRIM
     Route: 048
     Dates: start: 20241126, end: 20241130
  4. PALEXIA [Concomitant]
     Active Substance: TAPENTADOL HYDROCHLORIDE
  5. ATORVASTATIN CALCIUM [Concomitant]
     Active Substance: ATORVASTATIN CALCIUM
  6. DAFALGAN [Concomitant]
     Active Substance: ACETAMINOPHEN
  7. SURMONTIL [Concomitant]
     Active Substance: TRIMIPRAMINE MALEATE
  8. TORSEMIDE [Concomitant]
     Active Substance: TORSEMIDE
  9. CARVEDILOL [Concomitant]
     Active Substance: CARVEDILOL
  10. OXAZEPAM [Concomitant]
     Active Substance: OXAZEPAM
  11. ATROVENT [Concomitant]
     Active Substance: IPRATROPIUM BROMIDE
  12. NOVALGIN (METAMIZOLE SODIUM) [Concomitant]
     Active Substance: METAMIZOLE SODIUM
  13. CALCIUM\CHOLECALCIFEROL [Concomitant]
     Active Substance: CALCIUM\CHOLECALCIFEROL
  14. ENTRESTO [Concomitant]
     Active Substance: SACUBITRIL\VALSARTAN
  15. CLOMETHIAZOLE [Concomitant]
     Active Substance: CLOMETHIAZOLE
  16. TRELEGY ELLIPTA [Concomitant]
     Active Substance: FLUTICASONE FUROATE\UMECLIDINIUM BROMIDE\VILANTEROL TRIFENATATE
  17. MINITRAN [Concomitant]
     Active Substance: NITROGLYCERIN
  18. DAPAGLIFLOZIN [Concomitant]
     Active Substance: DAPAGLIFLOZIN
  19. ALENDRONAT [Concomitant]
     Active Substance: ALENDRONATE SODIUM
  20. IMOVANE [Concomitant]
     Active Substance: ZOPICLONE
  21. ASPIRIN [Concomitant]
     Active Substance: ASPIRIN
  22. PULMICORT TURBUHALER [Concomitant]
     Active Substance: BUDESONIDE

REACTIONS (6)
  - Hyperkalaemia [Unknown]
  - Acute kidney injury [Unknown]
  - Hyponatraemia [Unknown]
  - Metabolic acidosis [Unknown]
  - Blood lactic acid increased [Unknown]
  - Drug interaction [Unknown]
